FAERS Safety Report 15992794 (Version 5)
Quarter: 2019Q3

REPORT INFORMATION
  Report Type: Spontaneous
  Country: FR (occurrence: FR)
  Receive Date: 20190221
  Receipt Date: 20190924
  Transmission Date: 20191004
  Serious: Yes (Other)
  Sender: FDA-Public Use
  Company Number: FR-JAZZ-2019-FR-001296

PATIENT

DRUGS (2)
  1. VYXEOS [Suspect]
     Active Substance: CYTARABINE\DAUNORUBICIN
     Dosage: 100 IU/M2, CONSOLIDATION
     Route: 042
     Dates: start: 20181213
  2. VYXEOS [Suspect]
     Active Substance: CYTARABINE\DAUNORUBICIN
     Indication: ACUTE MYELOID LEUKAEMIA
     Dosage: 100 IU/M2, UNK
     Route: 042
     Dates: start: 20181022, end: 20181026

REACTIONS (8)
  - Pyrexia [Recovered/Resolved]
  - Abnormal faeces [Recovered/Resolved]
  - Brain natriuretic peptide increased [Recovered/Resolved]
  - Ejection fraction decreased [Recovered/Resolved]
  - Oxygen saturation decreased [Recovered/Resolved]
  - Pulmonary congestion [Recovered/Resolved]
  - Bone marrow failure [Recovered/Resolved]
  - Lung consolidation [Recovered/Resolved]

NARRATIVE: CASE EVENT DATE: 20181023
